FAERS Safety Report 25663391 (Version 3)
Quarter: 2025Q3

REPORT INFORMATION
  Report Type: Spontaneous
  Country: US (occurrence: US)
  Receive Date: 20250811
  Receipt Date: 20250819
  Transmission Date: 20251021
  Serious: Yes (Disabling, Other)
  Sender: AMGEN
  Company Number: US-AMGEN-USASP2025154652

PATIENT
  Age: 28 Year
  Sex: Female
  Weight: 56.689 kg

DRUGS (8)
  1. TEPEZZA [Suspect]
     Active Substance: TEPROTUMUMAB-TRBW
     Indication: Endocrine ophthalmopathy
     Route: 040
     Dates: start: 20201124
  2. TEPEZZA [Suspect]
     Active Substance: TEPROTUMUMAB-TRBW
     Indication: Toxic goitre
     Dosage: 1136 MILLIGRAM, Q3WK (SECOND INFUSION)
     Route: 040
     Dates: start: 20201215
  3. TEPEZZA [Suspect]
     Active Substance: TEPROTUMUMAB-TRBW
     Indication: Graves^ disease
     Dosage: 1136 MILLIGRAM, Q3WK
     Route: 040
     Dates: start: 20210512
  4. TEPEZZA [Suspect]
     Active Substance: TEPROTUMUMAB-TRBW
     Dosage: 1136 MILLIGRAM, Q3WK
     Route: 040
     Dates: start: 20210602
  5. TEPEZZA [Suspect]
     Active Substance: TEPROTUMUMAB-TRBW
     Dosage: 1136 MILLIGRAM, Q3WK
     Route: 040
     Dates: start: 20210630
  6. TEPEZZA [Suspect]
     Active Substance: TEPROTUMUMAB-TRBW
     Dosage: 1136 MILLIGRAM, Q3WK
     Route: 040
     Dates: start: 20210721
  7. TEPEZZA [Suspect]
     Active Substance: TEPROTUMUMAB-TRBW
     Dosage: 1136 MILLIGRAM, Q3WK
     Route: 040
     Dates: start: 20210811
  8. METHIMAZOLE [Concomitant]
     Active Substance: METHIMAZOLE
     Route: 048

REACTIONS (14)
  - Deafness permanent [Not Recovered/Not Resolved]
  - Endocrine ophthalmopathy [Unknown]
  - Graves^ disease [Unknown]
  - Pain [Unknown]
  - Emotional distress [Unknown]
  - Anxiety [Unknown]
  - Impaired quality of life [Unknown]
  - Discomfort [Unknown]
  - Tinnitus [Not Recovered/Not Resolved]
  - Product use complaint [Unknown]
  - Ovarian cyst [Unknown]
  - Stress [Unknown]
  - Alopecia [Unknown]
  - Muscle spasms [Unknown]

NARRATIVE: CASE EVENT DATE: 20210101
